FAERS Safety Report 9668596 (Version 2)
Quarter: 2014Q1

REPORT INFORMATION
  Report Type: Report from Study
  Country: US (occurrence: US)
  Receive Date: 20131105
  Receipt Date: 20140109
  Transmission Date: 20141002
  Serious: Yes (Death)
  Sender: FDA-Public Use
  Company Number: US-B.I. PHARMACEUTICALS,INC./RIDGEFIELD-2013-BI-34121BI

PATIENT
  Age: 53 Year
  Sex: Male

DRUGS (2)
  1. GILOTRIF [Suspect]
     Indication: NON-SMALL CELL LUNG CANCER METASTATIC
     Dosage: 40 MG
     Route: 048
     Dates: start: 20131020
  2. GILOTRIF [Suspect]
     Indication: LUNG NEOPLASM MALIGNANT

REACTIONS (6)
  - Death [Fatal]
  - Abdominal discomfort [Unknown]
  - Diarrhoea [Unknown]
  - Nausea [Unknown]
  - Vomiting [Unknown]
  - Diarrhoea [Unknown]
